FAERS Safety Report 23654659 (Version 1)
Quarter: 2024Q1

REPORT INFORMATION
  Report Type: Spontaneous
  Country: US (occurrence: None)
  Receive Date: 20240320
  Receipt Date: 20240320
  Transmission Date: 20240410
  Serious: Yes (Hospitalization)
  Sender: FDA-Public Use
  Company Number: None

PATIENT
  Age: 82 Year
  Sex: Female
  Weight: 101.1 kg

DRUGS (2)
  1. FASLODEX [Suspect]
     Active Substance: FULVESTRANT
     Dates: end: 20240227
  2. PALBOCICLIB [Suspect]
     Active Substance: PALBOCICLIB
     Dates: end: 20240219

REACTIONS (7)
  - Pyrexia [None]
  - Back pain [None]
  - Arthralgia [None]
  - Pain in extremity [None]
  - Pain in extremity [None]
  - Cyst rupture [None]
  - Swelling [None]

NARRATIVE: CASE EVENT DATE: 20240311
